FAERS Safety Report 18202550 (Version 1)
Quarter: 2020Q3

REPORT INFORMATION
  Report Type: Spontaneous
  Country: HU (occurrence: HU)
  Receive Date: 20200827
  Receipt Date: 20200827
  Transmission Date: 20201103
  Serious: Yes (Other)
  Sender: FDA-Public Use
  Company Number: HU-BAUSCH-BL-2020-024071

PATIENT
  Sex: Female

DRUGS (1)
  1. DESMOPRESSIN [Suspect]
     Active Substance: DESMOPRESSIN
     Indication: PLATELET DISORDER
     Dosage: OCCASIONALLY, OVER 24 HOURS OF USE
     Route: 065

REACTIONS (3)
  - Generalised tonic-clonic seizure [Unknown]
  - Brain oedema [Unknown]
  - Hyponatraemia [Unknown]
